FAERS Safety Report 7926626-6 (Version None)
Quarter: 2011Q4

REPORT INFORMATION
  Report Type: 
  Country: None (occurrence: None)
  Receive Date: 20111118
  Receipt Date: 20111109
  Transmission Date: 20120403
  Serious: No
  Sender: FDA-Public Use
  Company Number: US-BIOGENIDEC-2011BI043047

PATIENT
  Sex: Female

DRUGS (2)
  1. AVONEX [Suspect]
     Route: 030
     Dates: start: 20100621, end: 20110606
  2. AVONEX [Suspect]
     Indication: MULTIPLE SCLEROSIS
     Route: 030
     Dates: start: 20110806

REACTIONS (7)
  - THIRST [None]
  - GAIT DISTURBANCE [None]
  - EYELID PTOSIS [None]
  - SOMNOLENCE [None]
  - VIITH NERVE PARALYSIS [None]
  - HYPOAESTHESIA [None]
  - DYSARTHRIA [None]
